FAERS Safety Report 10118447 (Version 1)
Quarter: 2014Q2

REPORT INFORMATION
  Report Type: Spontaneous
  Country: FR (occurrence: FR)
  Receive Date: 20140425
  Receipt Date: 20140425
  Transmission Date: 20141212
  Serious: Yes (Hospitalization)
  Sender: FDA-Public Use
  Company Number: FR-PFIZER INC-2014111969

PATIENT
  Age: 61 Year
  Sex: Male

DRUGS (12)
  1. CELEBREX [Suspect]
     Indication: PAIN
     Dosage: UNK
     Route: 048
     Dates: start: 2007, end: 20131230
  2. SIMPONI [Concomitant]
     Indication: ANKYLOSING SPONDYLITIS
     Dosage: 50 MG, MONTHLY
     Route: 058
     Dates: start: 20131030, end: 20131230
  3. SELOKEN [Concomitant]
  4. IPERTEN [Concomitant]
  5. MANIDIPINE [Concomitant]
  6. METFORMIN [Concomitant]
  7. TAHOR [Concomitant]
  8. TRANXENE [Concomitant]
  9. SKENAN [Concomitant]
  10. ACTISKENAN [Concomitant]
  11. DIFFU K [Concomitant]
  12. INEXIUM /01479302/ [Concomitant]

REACTIONS (3)
  - Duodenal ulcer perforation [Recovering/Resolving]
  - Peritonitis [Unknown]
  - Multi-organ failure [Unknown]
